FAERS Safety Report 7509718-5 (Version None)
Quarter: 2011Q2

REPORT INFORMATION
  Report Type: 
  Country: None (occurrence: None)
  Receive Date: 20110527
  Receipt Date: 20081028
  Transmission Date: 20111010
  Serious: Yes (Hospitalization, Disabling, Other)
  Sender: FDA-Public Use
  Company Number: US-MERCK-0808USA01377

PATIENT
  Age: 60 Year
  Sex: Female
  Weight: 75 kg

DRUGS (8)
  1. ZOCOR [Suspect]
     Indication: CORONARY ARTERY DISEASE
     Route: 048
     Dates: start: 20080401, end: 20080803
  2. ZOCOR [Suspect]
     Indication: PROPHYLAXIS
     Route: 048
     Dates: start: 20080401, end: 20080803
  3. PRINIVIL [Concomitant]
     Route: 065
  4. PLAVIX [Concomitant]
     Route: 065
  5. METOPROLOL [Concomitant]
     Route: 065
  6. RANEXA [Concomitant]
     Route: 048
     Dates: start: 20080501, end: 20080803
  7. ASPIRIN [Concomitant]
     Route: 065
  8. PROTONIX [Concomitant]
     Route: 065

REACTIONS (4)
  - HEPATITIS [None]
  - MYOPATHY [None]
  - URINARY TRACT INFECTION ENTEROCOCCAL [None]
  - RHABDOMYOLYSIS [None]
